FAERS Safety Report 10330874 (Version 1)
Quarter: 2014Q3

REPORT INFORMATION
  Report Type: Spontaneous
  Country: GB (occurrence: GB)
  Receive Date: 20140722
  Receipt Date: 20140722
  Transmission Date: 20150326
  Serious: Yes (Other)
  Sender: FDA-Public Use
  Company Number: GB-BAYER-2014-109123

PATIENT
  Age: 29 Year
  Sex: Female
  Weight: 76.2 kg

DRUGS (1)
  1. YASMIN [Suspect]
     Active Substance: DROSPIRENONE\ETHINYL ESTRADIOL
     Indication: CONTRACEPTION
     Dosage: UNK
     Route: 048
     Dates: start: 20140601, end: 20140701

REACTIONS (5)
  - Depression suicidal [Recovering/Resolving]
  - Crying [Recovering/Resolving]
  - Feeling of despair [Recovering/Resolving]
  - Mood swings [Recovering/Resolving]
  - Suicidal ideation [Recovering/Resolving]

NARRATIVE: CASE EVENT DATE: 20140602
